FAERS Safety Report 10787646 (Version 1)
Quarter: 2015Q1

REPORT INFORMATION
  Report Type: Spontaneous
  Country: AT (occurrence: AT)
  Receive Date: 20150212
  Receipt Date: 20150212
  Transmission Date: 20150721
  Serious: Yes (Hospitalization)
  Sender: FDA-Public Use
  Company Number: AT-ROCHE-1536090

PATIENT
  Age: 79 Year
  Sex: Female

DRUGS (13)
  1. AMLODIPINE [Concomitant]
     Active Substance: AMLODIPINE BESYLATE
  2. SELOKEN [Concomitant]
     Active Substance: METOPROLOL
  3. PANTOLOC [Concomitant]
     Active Substance: PANTOPRAZOLE SODIUM
  4. TEBOFORTAN [Concomitant]
  5. XEFO [Concomitant]
     Active Substance: LORNOXICAM
  6. LASIX [Concomitant]
     Active Substance: FUROSEMIDE
  7. DANCOR [Concomitant]
     Active Substance: NICORANDIL
  8. INSULIN [Concomitant]
     Active Substance: INSULIN NOS
  9. THROMBO ASS [Concomitant]
     Active Substance: ASPIRIN
  10. THYREX [Concomitant]
     Active Substance: LEVOTHYROXINE SODIUM
  11. MABTHERA [Suspect]
     Active Substance: RITUXIMAB
     Indication: RHEUMATOID ARTHRITIS
     Route: 042
     Dates: start: 201404
  12. COSAAR PLUS [Concomitant]
     Active Substance: HYDROCHLOROTHIAZIDE\LOSARTAN
  13. LEXOTANIL [Concomitant]
     Active Substance: BROMAZEPAM

REACTIONS (1)
  - Bronchopulmonary aspergillosis [Recovered/Resolved]

NARRATIVE: CASE EVENT DATE: 201409
